FAERS Safety Report 6556592-X (Version None)
Quarter: 2010Q1

REPORT INFORMATION
  Report Type: 
  Country: None (occurrence: None)
  Receive Date: 20100128
  Receipt Date: 20091124
  Transmission Date: 20100710
  Serious: Yes (Hospitalization)
  Sender: FDA-Public Use
  Company Number: GB-PFIZER INC-2009289028

PATIENT
  Age: 22 Year
  Sex: Male

DRUGS (5)
  1. METHYLPREDNISOLONE AND METHYLPREDNISOLONE ACETATE AND METHYLPREDNISOLO [Suspect]
     Route: 042
  2. PARACETAMOL [Suspect]
  3. AZATHIOPRINE [Suspect]
     Indication: IMMUNOSUPPRESSION
  4. MYCOPHENOLIC ACID [Suspect]
     Indication: IMMUNOSUPPRESSION
  5. TACROLIMUS [Suspect]
     Indication: IMMUNOSUPPRESSION

REACTIONS (3)
  - ACUTE HEPATIC FAILURE [None]
  - OVERDOSE [None]
  - PANCREATITIS ACUTE [None]
